FAERS Safety Report 6220234-3 (Version None)
Quarter: 2009Q2

REPORT INFORMATION
  Report Type: 
  Country: None (occurrence: None)
  Receive Date: 20090609
  Receipt Date: 20090526
  Transmission Date: 20091009
  Serious: Yes (Death, Other)
  Sender: FDA-Public Use
  Company Number: NL-ELI_LILLY_AND_COMPANY-NL200905005468

PATIENT
  Sex: Male

DRUGS (2)
  1. PROZAC [Suspect]
  2. CARBON MONOXIDE [Concomitant]

REACTIONS (4)
  - COMPLETED SUICIDE [None]
  - DRUG TOXICITY [None]
  - EMOTIONAL DISORDER [None]
  - HOMICIDE [None]
